FAERS Safety Report 25440749 (Version 1)
Quarter: 2025Q2

REPORT INFORMATION
  Report Type: Report from Study
  Country: GB (occurrence: GB)
  Receive Date: 20250616
  Receipt Date: 20250616
  Transmission Date: 20250716
  Serious: Yes (Other)
  Sender: SANDOZ
  Company Number: GB-SANDOZ-SDZ2023GB063984

PATIENT
  Sex: Female

DRUGS (1)
  1. OMNITROPE [Suspect]
     Active Substance: SOMATROPIN
     Indication: Hyperpituitarism
     Dosage: 0.70 MG, QD
     Route: 058

REACTIONS (5)
  - Surgery [Unknown]
  - Irritability [Unknown]
  - Emotional disorder [Recovering/Resolving]
  - Injection site discharge [Unknown]
  - Product dose omission issue [Recovering/Resolving]
